FAERS Safety Report 22208411 (Version 2)
Quarter: 2023Q2

REPORT INFORMATION
  Report Type: Spontaneous
  Country: US (occurrence: US)
  Receive Date: 20230413
  Receipt Date: 20230428
  Transmission Date: 20230722
  Serious: Yes (Hospitalization, Other)
  Sender: FDA-Public Use
  Company Number: US-TEVA-2023-US-2875001

PATIENT
  Age: 63 Year
  Sex: Male

DRUGS (10)
  1. CISPLATIN [Suspect]
     Active Substance: CISPLATIN
     Indication: Bladder transitional cell carcinoma
     Dosage: NEOADJUVANT CHEMOTHERAPY
     Route: 065
     Dates: end: 202007
  2. FLUDROCORTISONE [Suspect]
     Active Substance: FLUDROCORTISONE
     Indication: Renal salt-wasting syndrome
     Dosage: .2 MILLIGRAM DAILY;
     Route: 065
  3. FLUDROCORTISONE [Suspect]
     Active Substance: FLUDROCORTISONE
     Dosage: DOSAGE TAPERED
     Route: 065
  4. SODIUM CHLORIDE [Suspect]
     Active Substance: SODIUM CHLORIDE
     Indication: Renal salt-wasting syndrome
     Dosage: 4 GRAM DAILY;
     Route: 048
  5. SODIUM CHLORIDE [Suspect]
     Active Substance: SODIUM CHLORIDE
     Dosage: DOSAGE TAPERED
     Route: 048
  6. METHOTREXATE [Concomitant]
     Active Substance: METHOTREXATE
     Indication: Bladder transitional cell carcinoma
     Dosage: NEOADJUVANT CHEMOTHERAPY
     Route: 065
     Dates: end: 202007
  7. VINBLASTINE [Concomitant]
     Active Substance: VINBLASTINE
     Indication: Bladder transitional cell carcinoma
     Dosage: NEOADJUVANT CHEMOTHERAPY
     Route: 065
     Dates: end: 202007
  8. DOXORUBICIN [Concomitant]
     Active Substance: DOXORUBICIN
     Indication: Bladder transitional cell carcinoma
     Dosage: NEOADJUVANT CHEMOTHERAPY
     Route: 065
     Dates: end: 202007
  9. SODIUM BICARBONATE [Concomitant]
     Active Substance: SODIUM BICARBONATE
     Indication: Renal salt-wasting syndrome
     Dosage: 1950 MILLIGRAM DAILY;
     Route: 048
  10. SODIUM CHLORIDE [Concomitant]
     Active Substance: SODIUM CHLORIDE
     Indication: Renal salt-wasting syndrome
     Route: 065

REACTIONS (7)
  - Renal salt-wasting syndrome [Recovering/Resolving]
  - Acidosis hyperchloraemic [Unknown]
  - Hyperkalaemia [Unknown]
  - Hypovolaemia [Unknown]
  - Rebound effect [Unknown]
  - Hyponatraemia [Unknown]
  - Acute kidney injury [Unknown]
